FAERS Safety Report 5625164-3 (Version None)
Quarter: 2008Q1

REPORT INFORMATION
  Report Type: 
  Country: None (occurrence: None)
  Receive Date: 20080208
  Receipt Date: 20080125
  Transmission Date: 20080703
  Serious: Yes (Other)
  Sender: FDA-Public Use
  Company Number: 2008S1000029

PATIENT
  Age: 45 Year
  Sex: Female

DRUGS (1)
  1. ACITRETIN [Suspect]
     Indication: RASH PAPULAR
     Dosage: PO
     Route: 048

REACTIONS (2)
  - DEPRESSION [None]
  - VISUAL DISTURBANCE [None]
